FAERS Safety Report 5317668-8 (Version None)
Quarter: 2007Q2

REPORT INFORMATION
  Report Type: 
  Country: None (occurrence: None)
  Receive Date: 20070507
  Receipt Date: 20070426
  Transmission Date: 20071010
  Serious: Yes (Other)
  Sender: FDA-Public Use
  Company Number: FR-JNJFOC-20070500589

PATIENT
  Sex: Male

DRUGS (3)
  1. EPITOMAX [Suspect]
     Indication: EPILEPSY
  2. ANTIVIRAL [Interacting]
     Indication: HEPATITIS C
  3. METHADONE HCL [Concomitant]

REACTIONS (2)
  - CONVULSION [None]
  - DRUG INTERACTION [None]
